FAERS Safety Report 6425922-1 (Version None)
Quarter: 2009Q4

REPORT INFORMATION
  Report Type: 
  Country: None (occurrence: None)
  Receive Date: 20091103
  Receipt Date: 20091023
  Transmission Date: 20100525
  Serious: Yes (Hospitalization)
  Sender: FDA-Public Use
  Company Number: PL-JNJCH-2009027981

PATIENT
  Sex: Male
  Weight: 10.27 kg

DRUGS (1)
  1. VISINE CLASSIC [Suspect]
     Indication: ACCIDENTAL EXPOSURE
     Dosage: TEXT:UNSPECIFIED
     Route: 048
     Dates: start: 20091018, end: 20091018

REACTIONS (4)
  - ACCIDENTAL EXPOSURE [None]
  - APATHY [None]
  - PALLOR [None]
  - SOMNOLENCE [None]
